FAERS Safety Report 7624111-2 (Version None)
Quarter: 2011Q3

REPORT INFORMATION
  Report Type: 
  Country: None (occurrence: None)
  Receive Date: 20110720
  Receipt Date: 20110711
  Transmission Date: 20111222
  Serious: No
  Sender: FDA-Public Use
  Company Number: US-PFIZER INC-2011155917

PATIENT
  Sex: Male
  Weight: 79.365 kg

DRUGS (10)
  1. DORYX [Suspect]
     Indication: INFECTION
     Dosage: 100 MG, 2X/DAY
     Route: 048
     Dates: start: 20110419, end: 20110607
  2. CYMBALTA [Concomitant]
     Dosage: UNK
  3. TOPROL-XL [Concomitant]
     Dosage: 25 MG, 2X/DAY
  4. PRAVASTATIN [Concomitant]
     Dosage: 40 MG, UNK
  5. MORPHINE [Concomitant]
     Dosage: 45 MG, UNK
  6. GABAPENTIN [Suspect]
  7. SENNOSIDES [Concomitant]
     Dosage: UNK
  8. OXYCODONE [Concomitant]
     Indication: PAIN
     Dosage: 5 MG, 3X/DAY
  9. ACETYLSALICYLIC ACID [Concomitant]
     Dosage: UNK
  10. VIBRAMYCIN [Suspect]
     Dosage: UNK

REACTIONS (3)
  - PARAESTHESIA [None]
  - BURNING SENSATION [None]
  - PHOTOSENSITIVITY REACTION [None]
